FAERS Safety Report 6972947-3 (Version None)
Quarter: 2010Q3

REPORT INFORMATION
  Report Type: 
  Country: None (occurrence: None)
  Receive Date: 20100909
  Receipt Date: 20100527
  Transmission Date: 20110219
  Serious: No
  Sender: FDA-Public Use
  Company Number: US-KINGPHARMUSA00001-K201000682

PATIENT
  Sex: Female
  Weight: 52.154 kg

DRUGS (3)
  1. EMBEDA [Suspect]
     Indication: PAIN
     Dosage: 30 MG, BID
     Route: 048
     Dates: start: 20100521, end: 20100527
  2. PHENERGAN [Concomitant]
     Indication: NAUSEA
     Dosage: 25 MG, EVERY 6 HOURS, PRN
     Route: 048
  3. PHENERGAN [Concomitant]
     Indication: VOMITING

REACTIONS (4)
  - BURNING SENSATION [None]
  - CONTUSION [None]
  - MUSCLE SPASMS [None]
  - VARICOSE VEIN RUPTURED [None]
